FAERS Safety Report 9377537 (Version 1)
Quarter: 2013Q3

REPORT INFORMATION
  Report Type: Spontaneous
  Country: US (occurrence: US)
  Receive Date: 20130701
  Receipt Date: 20130701
  Transmission Date: 20140515
  Serious: Yes (Other)
  Sender: FDA-Public Use
  Company Number: US-BAYER-2013-078143

PATIENT
  Sex: Female
  Weight: 68.03 kg

DRUGS (6)
  1. BAYER GENUINE ASPIRIN ORIGINAL STRENGTH [Suspect]
     Dosage: 1 DF, QD
     Route: 048
     Dates: start: 2005
  2. BIOTIN [Concomitant]
  3. OCUVITE [ASCORBIC ACID,BETACAROTENE,COPPER,TOCOFERSOLAN,ZINC] [Concomitant]
  4. VITAMIN C [Concomitant]
  5. MOVE FREE [Concomitant]
  6. TYLENOL [PARACETAMOL] [Concomitant]
     Dosage: 1 DF, UNK

REACTIONS (3)
  - Swollen tongue [Recovered/Resolved]
  - Pharyngeal oedema [Recovered/Resolved]
  - Expired drug administered [None]
